FAERS Safety Report 9790831 (Version 2)
Quarter: 2013Q4

REPORT INFORMATION
  Report Type: Report from Study
  Country: IN (occurrence: IN)
  Receive Date: 20131231
  Receipt Date: 20131231
  Transmission Date: 20140711
  Serious: Yes (Death, Hospitalization)
  Sender: FDA-Public Use
  Company Number: PHHY2013IN132770

PATIENT
  Age: 51 Year
  Sex: Female

DRUGS (1)
  1. SIMULECT [Suspect]
     Indication: RENAL TRANSPLANT
     Dosage: UNK UKN, UNK
     Route: 042
     Dates: start: 20131019

REACTIONS (9)
  - Multi-organ disorder [Fatal]
  - Tachypnoea [Fatal]
  - Hepatic function abnormal [Fatal]
  - Cardio-respiratory arrest [Fatal]
  - Klebsiella sepsis [Fatal]
  - Pyrexia [Fatal]
  - Wound sepsis [Fatal]
  - General physical health deterioration [Unknown]
  - Kidney transplant rejection [Unknown]
